FAERS Safety Report 7972658-1 (Version None)
Quarter: 2011Q4

REPORT INFORMATION
  Report Type: 
  Country: None (occurrence: None)
  Receive Date: 20111213
  Receipt Date: 20111202
  Transmission Date: 20120403
  Serious: Yes (Hospitalization, Other)
  Sender: FDA-Public Use
  Company Number: US-BAYER-2011-049534

PATIENT
  Age: 37 Year
  Sex: Female
  Weight: 63.492 kg

DRUGS (4)
  1. TYLENOL W/ CODEINE NO. 3 [Concomitant]
     Dosage: UNK
     Dates: start: 20080601
  2. CIPROFLOXACIN [Concomitant]
     Indication: URINARY TRACT INFECTION
     Dosage: 500 MG, BID
     Dates: start: 20080602, end: 20080608
  3. YAZ [Suspect]
     Dosage: UNK
     Dates: start: 20071101, end: 20080602
  4. PROPOXYPHENE HYDROCHLORIDE [Concomitant]
     Indication: ANALGESIC THERAPY
     Dosage: UNK UNK, PRN
     Dates: start: 20080602

REACTIONS (23)
  - DEEP VEIN THROMBOSIS [None]
  - PAIN [None]
  - MUSCLE SPASMS [None]
  - NECK PAIN [None]
  - PAIN IN EXTREMITY [None]
  - WEIGHT DECREASED [None]
  - VASCULAR SKIN DISORDER [None]
  - ANXIETY [None]
  - MUSCULOSKELETAL CHEST PAIN [None]
  - SPEECH DISORDER [None]
  - EMOTIONAL DISTRESS [None]
  - BACK PAIN [None]
  - HAEMATEMESIS [None]
  - POOR QUALITY SLEEP [None]
  - FEAR [None]
  - CHEST PAIN [None]
  - DEPRESSION [None]
  - PANIC ATTACK [None]
  - DYSPNOEA [None]
  - HYPOKINESIA [None]
  - PNEUMOTHORAX [None]
  - PULMONARY EMBOLISM [None]
  - GENERAL PHYSICAL HEALTH DETERIORATION [None]
